FAERS Safety Report 7647947-0 (Version None)
Quarter: 2011Q3

REPORT INFORMATION
  Report Type: 
  Country: None (occurrence: None)
  Receive Date: 20110801
  Receipt Date: 20110722
  Transmission Date: 20111222
  Serious: Yes (Other)
  Sender: FDA-Public Use
  Company Number: US-ASTRAZENECA-2011SE35116

PATIENT
  Age: 81 Year
  Sex: Female

DRUGS (3)
  1. NEXIUM [Suspect]
     Route: 048
  2. ZANTAC [Suspect]
     Route: 065
  3. PLAVIX [Concomitant]

REACTIONS (3)
  - CEREBROVASCULAR ACCIDENT [None]
  - DYSPEPSIA [None]
  - DRUG DOSE OMISSION [None]
